FAERS Safety Report 24690567 (Version 2)
Quarter: 2025Q1

REPORT INFORMATION
  Report Type: Report from Study
  Country: EG (occurrence: EG)
  Receive Date: 20241203
  Receipt Date: 20250109
  Transmission Date: 20250408
  Serious: Yes (Hospitalization, Disabling)
  Sender: ROCHE
  Company Number: EG-ROCHE-10000118069

PATIENT
  Age: 31 Year
  Sex: Female
  Weight: 72 kg

DRUGS (2)
  1. OCREVUS [Suspect]
     Active Substance: OCRELIZUMAB
     Indication: Multiple sclerosis
     Route: 042
     Dates: start: 20230320
  2. OCREVUS [Suspect]
     Active Substance: OCRELIZUMAB
     Route: 042
     Dates: start: 20230520

REACTIONS (4)
  - Medical device implantation [Recovered/Resolved]
  - Road traffic accident [Unknown]
  - Injury [Unknown]
  - Gait disturbance [Not Recovered/Not Resolved]

NARRATIVE: CASE EVENT DATE: 20241016
